FAERS Safety Report 12196926 (Version 11)
Quarter: 2016Q4

REPORT INFORMATION
  Report Type: Report from Study
  Country: None (occurrence: BE)
  Receive Date: 20160321
  Receipt Date: 20161117
  Transmission Date: 20170207
  Serious: Yes (Other)
  Sender: FDA-Public Use
  Company Number: BE-ABBVIE-16P-013-1586021-00

PATIENT
  Age: 77 Year
  Sex: Female

DRUGS (16)
  1. DUODOPA [Suspect]
     Active Substance: CARBIDOPA\LEVODOPA
     Dosage: AM=5.5ML;CD=2.6ML/HR DURING 16HRS;ED=1ML
     Route: 050
     Dates: start: 20160308, end: 20160311
  2. DUODOPA [Suspect]
     Active Substance: CARBIDOPA\LEVODOPA
     Dosage: AM=5.5ML, CD=3.4ML/HR DURING 16HRS, ED=2ML
     Route: 050
     Dates: start: 20160404, end: 20160412
  3. DUODOPA [Suspect]
     Active Substance: CARBIDOPA\LEVODOPA
     Dosage: AM=6.5ML,CD=3.7ML/HR DURING 16HRS,ED=2.5ML
     Route: 050
     Dates: start: 20160518, end: 20160811
  4. PROLOPA [Concomitant]
     Active Substance: BENSERAZIDE\LEVODOPA
     Indication: PRODUCT USED FOR UNKNOWN INDICATION
     Dosage: FORM STRENGTH: 200MG/50MG, EVERY 2 HRS
  5. RIVOTRIL [Concomitant]
     Active Substance: CLONAZEPAM
     Indication: PRODUCT USED FOR UNKNOWN INDICATION
     Dosage: DROPS
  6. MIRAPEXIN [Concomitant]
     Active Substance: PRAMIPEXOLE
     Indication: PRODUCT USED FOR UNKNOWN INDICATION
  7. GLUCOPHAGE [Concomitant]
     Active Substance: METFORMIN HYDROCHLORIDE
     Indication: PRODUCT USED FOR UNKNOWN INDICATION
  8. DUODOPA [Suspect]
     Active Substance: CARBIDOPA\LEVODOPA
     Dosage: AM=5.5ML;CD=2.6ML/HR DURING 16HRS;ED=1ML
     Route: 050
     Dates: start: 20160311, end: 20160316
  9. DUODOPA [Suspect]
     Active Substance: CARBIDOPA\LEVODOPA
     Dosage: AM=5.5ML; CD=2.8ML/HR DURING 16HRS;ED=1.5ML
     Route: 050
     Dates: start: 20160316, end: 20160317
  10. DUODOPA [Suspect]
     Active Substance: CARBIDOPA\LEVODOPA
     Dosage: AM=5.5ML, CD=3.1ML/HR DURING 16HRS, ED=2ML
     Route: 050
     Dates: start: 20160317, end: 20160404
  11. DUODOPA [Suspect]
     Active Substance: CARBIDOPA\LEVODOPA
     Dosage: AM: 6.5ML; CD: 3.9ML/H FOR 16HRS; ED: 2.5ML
     Route: 050
     Dates: start: 20160811
  12. GABAPENTIN. [Concomitant]
     Active Substance: GABAPENTIN
     Indication: PRODUCT USED FOR UNKNOWN INDICATION
  13. DUODOPA [Suspect]
     Active Substance: CARBIDOPA\LEVODOPA
     Indication: PARKINSON^S DISEASE
     Dosage: AM=5.5ML;CD=2.6ML/HR DURING 16HRS;ED=1ML
     Route: 050
     Dates: start: 20151201, end: 20151203
  14. DUODOPA [Suspect]
     Active Substance: CARBIDOPA\LEVODOPA
     Dosage: AM=6.5ML, CD=3.3ML/HR DURING 16HRS, ED=2ML
     Route: 050
     Dates: start: 20160412, end: 20160518
  15. PROLOPA HBS [Concomitant]
     Active Substance: BENSERAZIDE\LEVODOPA
     Indication: PRODUCT USED FOR UNKNOWN INDICATION
     Dosage: FORM STRENGTH: 100MG/25MG
  16. CONTRAMAL [Concomitant]
     Active Substance: TRAMADOL HYDROCHLORIDE
     Indication: PRODUCT USED FOR UNKNOWN INDICATION

REACTIONS (28)
  - Incorrect route of drug administration [Recovered/Resolved]
  - Poor quality sleep [Unknown]
  - Rib fracture [Unknown]
  - Stress [Unknown]
  - Stoma site infection [Not Recovered/Not Resolved]
  - Lymphoma [Unknown]
  - Gait disturbance [Recovered/Resolved]
  - Fatigue [Unknown]
  - Anxiety [Not Recovered/Not Resolved]
  - Stoma site erythema [Unknown]
  - Abdominal neoplasm [Unknown]
  - Platelet count decreased [Unknown]
  - Tremor [Unknown]
  - Freezing phenomenon [Not Recovered/Not Resolved]
  - Staphylococcal skin infection [Not Recovered/Not Resolved]
  - Movement disorder [Not Recovered/Not Resolved]
  - Malaise [Unknown]
  - Therapeutic response decreased [Unknown]
  - Hypophagia [Unknown]
  - Nervousness [Not Recovered/Not Resolved]
  - Parkinsonian gait [Not Recovered/Not Resolved]
  - Fall [Recovered/Resolved]
  - Device dislocation [Recovered/Resolved]
  - Abdominal pain [Unknown]
  - Abdominal distension [Unknown]
  - General physical health deterioration [Unknown]
  - Mental disorder [Unknown]
  - Dyskinesia [Not Recovered/Not Resolved]

NARRATIVE: CASE EVENT DATE: 201607
